FAERS Safety Report 5957458-6 (Version None)
Quarter: 2008Q4

REPORT INFORMATION
  Report Type: 
  Country: None (occurrence: None)
  Receive Date: 20081114
  Receipt Date: 20081105
  Transmission Date: 20090506
  Serious: Yes (Other)
  Sender: FDA-Public Use
  Company Number: GXKR2008GB09955

PATIENT
  Age: 50 Year
  Sex: Female

DRUGS (3)
  1. RAMIPRIL [Suspect]
     Indication: HYPERTENSION
     Dosage: 2.5 MG, ORAL
     Route: 048
     Dates: start: 20080918, end: 20080930
  2. CHAMPIX (VARENICLINE TARTRATE) (VARENICLINE TARTRATE) [Suspect]
     Indication: SMOKING CESSATION THERAPY
     Dosage: 1 MG,ORAL
     Route: 048
     Dates: start: 20080829, end: 20080930
  3. ACETYLSALICYLIC ACID SRT [Concomitant]

REACTIONS (4)
  - DIZZINESS [None]
  - DRUG INTERACTION [None]
  - PALPITATIONS [None]
  - VOMITING [None]
